FAERS Safety Report 5288429-3 (Version None)
Quarter: 2007Q2

REPORT INFORMATION
  Report Type: 
  Country: None (occurrence: None)
  Receive Date: 20070405
  Receipt Date: 20070322
  Transmission Date: 20071010
  Serious: Yes (Hospitalization)
  Sender: FDA-Public Use
  Company Number: US-AMGEN-US214376

PATIENT
  Sex: Male
  Weight: 72.6 kg

DRUGS (11)
  1. PANITUMUMAB [Suspect]
     Indication: COLORECTAL CANCER
     Route: 042
     Dates: start: 20070207
  2. IRINOTECAN HCL [Suspect]
     Route: 042
  3. FLUOROURACIL [Suspect]
     Route: 042
  4. LEUCOVORIN CALCIUM [Suspect]
     Route: 042
  5. FISH OIL [Concomitant]
     Route: 048
     Dates: start: 20060101
  6. VITAMIN CAP [Concomitant]
     Route: 048
     Dates: start: 20020101
  7. ASCORBIC ACID [Concomitant]
     Route: 048
     Dates: start: 20060101
  8. IMODIUM [Concomitant]
     Route: 048
     Dates: start: 20070129
  9. MILK OF MAGNESIA [Concomitant]
     Route: 048
     Dates: start: 20070212, end: 20070221
  10. DOCUSATE SODIUM [Concomitant]
     Route: 048
     Dates: start: 20070212, end: 20070221
  11. MEGACE [Concomitant]
     Route: 048
     Dates: start: 20070221

REACTIONS (6)
  - ANOREXIA [None]
  - DIARRHOEA [None]
  - FATIGUE [None]
  - FEBRILE NEUTROPENIA [None]
  - HAEMATOCRIT DECREASED [None]
  - ORAL SOFT TISSUE DISORDER [None]
